FAERS Safety Report 25233691 (Version 2)
Quarter: 2025Q2

REPORT INFORMATION
  Report Type: Report from Study
  Country: US (occurrence: US)
  Receive Date: 20250424
  Receipt Date: 20250612
  Transmission Date: 20250717
  Serious: No
  Sender: SUNOVION
  Company Number: US-SUMITOMO PHARMA SWITZERLAND GMBH-2025SPA003999

PATIENT

DRUGS (23)
  1. ORGOVYX [Suspect]
     Active Substance: RELUGOLIX
     Indication: Prostate cancer
     Dosage: 120 MG, QD
     Route: 048
  2. NUBEQA [Suspect]
     Active Substance: DAROLUTAMIDE
     Indication: Prostate cancer
     Dosage: 600 MG, BID
     Route: 065
     Dates: start: 20250321
  3. AMLODIPINE [Concomitant]
     Active Substance: AMLODIPINE BESYLATE
     Route: 065
  4. ASPIRIN [Concomitant]
     Active Substance: ASPIRIN
     Route: 065
  5. ATORVASTATIN [Concomitant]
     Active Substance: ATORVASTATIN
     Route: 065
  6. CALCIUM [Concomitant]
     Active Substance: CALCIUM
     Route: 065
  7. CLOPIDOGREL [Concomitant]
     Active Substance: CLOPIDOGREL BISULFATE
     Route: 065
  8. COPPER [Concomitant]
     Active Substance: COPPER
     Route: 065
  9. ELIQUIS [Concomitant]
     Active Substance: APIXABAN
     Route: 065
  10. Hctzide [Concomitant]
     Route: 065
  11. METOPROLOL [Concomitant]
     Active Substance: METOPROLOL
     Route: 065
  12. VITAMINS [Concomitant]
     Active Substance: VITAMINS
     Route: 065
  13. NITROSTAT [Concomitant]
     Active Substance: NITROGLYCERIN
     Route: 065
  14. FERRIC POLYSACCHARIDE COMPLEX [Concomitant]
     Active Substance: FERRIC POLYSACCHARIDE COMPLEX
     Route: 065
  15. OMEPRAZOLE [Concomitant]
     Active Substance: OMEPRAZOLE
     Route: 065
  16. ONDANSETRON [Concomitant]
     Active Substance: ONDANSETRON
     Route: 065
  17. OXYCODONE [Concomitant]
     Active Substance: OXYCODONE
     Route: 065
  18. POTASSIUM [Concomitant]
     Active Substance: POTASSIUM
     Route: 065
  19. QUETIAPINE [Concomitant]
     Active Substance: QUETIAPINE
     Route: 065
  20. TRAMADOL [Concomitant]
     Active Substance: TRAMADOL
     Route: 065
  21. VITAMIN B12 [Concomitant]
     Active Substance: CYANOCOBALAMIN
     Route: 065
  22. VOLTAREN [Concomitant]
     Active Substance: DICLOFENAC SODIUM
     Route: 065
  23. NITROGLYCERIN [Concomitant]
     Active Substance: NITROGLYCERIN
     Route: 065

REACTIONS (2)
  - Fatigue [Unknown]
  - Back pain [Unknown]
